FAERS Safety Report 8874126 (Version 4)
Quarter: 2012Q4

REPORT INFORMATION
  Report Type: 
  Country: US (occurrence: US)
  Receive Date: 20121023
  Receipt Date: 20121125
  Transmission Date: 20130627
  Serious: No
  Sender: FDA-Public Use
  Company Number: US-009507513-1210USA009747

PATIENT
  Sex: Female

DRUGS (1)
  1. IMPLANON [Suspect]
     Dosage: UNK
     Dates: start: 200910

REACTIONS (4)
  - Eczema [Unknown]
  - Device difficult to use [Unknown]
  - Medical device complication [Unknown]
  - Incorrect drug administration duration [Unknown]
